FAERS Safety Report 8344156-7 (Version None)
Quarter: 2012Q2

REPORT INFORMATION
  Report Type: 
  Country: None (occurrence: None)
  Receive Date: 20120508
  Receipt Date: 20120504
  Transmission Date: 20120825
  Serious: Yes (Death)
  Sender: FDA-Public Use
  Company Number: NO-ASTRAZENECA-2012SE28844

PATIENT
  Age: 70 Year
  Sex: Male

DRUGS (2)
  1. WARFARIN SODIUM [Interacting]
     Indication: AORTIC VALVE REPLACEMENT
     Route: 048
     Dates: start: 19930101
  2. VIMOVO [Suspect]
     Indication: BACK PAIN
     Dosage: UNKNOWN DOSAGE
     Route: 048

REACTIONS (3)
  - DRUG INTERACTION [None]
  - CEREBRAL HAEMORRHAGE [None]
  - HEADACHE [None]
